FAERS Safety Report 17950095 (Version 3)
Quarter: 2021Q2

REPORT INFORMATION
  Report Type: Spontaneous
  Country: US (occurrence: US)
  Receive Date: 20200626
  Receipt Date: 20210629
  Transmission Date: 20210717
  Serious: Yes (Other)
  Sender: FDA-Public Use
  Company Number: US-GILEAD-2020-0476518

PATIENT
  Age: 58 Year
  Sex: Male
  Weight: 65.76 kg

DRUGS (20)
  1. PENICILLIN NOS [Concomitant]
     Active Substance: PENICILLIN
  2. FUZEON [Concomitant]
     Active Substance: ENFUVIRTIDE
  3. PANTOPRAZOLE [Concomitant]
     Active Substance: PANTOPRAZOLE
  4. METOPROLOL. [Concomitant]
     Active Substance: METOPROLOL
  5. AZITHROMYCIN ANHYDROUS. [Concomitant]
     Active Substance: AZITHROMYCIN ANHYDROUS
  6. SLEEP AID [MELATONIN] [Concomitant]
  7. SYMTUZA [Concomitant]
     Active Substance: COBICISTAT\DARUNAVIR\EMTRICITABINE\TENOFOVIR ALAFENAMIDE
  8. VIREAD [Suspect]
     Active Substance: TENOFOVIR DISOPROXIL FUMARATE
     Dosage: UNK
     Route: 065
     Dates: start: 200802, end: 201903
  9. ATORVASTATIN [Concomitant]
     Active Substance: ATORVASTATIN
  10. ISENTRESS [Concomitant]
     Active Substance: RALTEGRAVIR POTASSIUM
  11. PREZISTA [Concomitant]
     Active Substance: DARUNAVIR ETHANOLATE
  12. RETROVIR [Concomitant]
     Active Substance: ZIDOVUDINE
  13. CHLORHEXIDINE [Concomitant]
     Active Substance: CHLORHEXIDINE
  14. TEMAZEPAM. [Concomitant]
     Active Substance: TEMAZEPAM
  15. NORVIR [Concomitant]
     Active Substance: RITONAVIR
  16. VIREAD [Suspect]
     Active Substance: TENOFOVIR DISOPROXIL FUMARATE
     Indication: HIV INFECTION
     Dosage: UNK
     Route: 048
     Dates: start: 200801, end: 201903
  17. ACETAMINOPHEN. [Concomitant]
     Active Substance: ACETAMINOPHEN
  18. EPIVIR [Concomitant]
     Active Substance: LAMIVUDINE
  19. TIVICAY [Concomitant]
     Active Substance: DOLUTEGRAVIR SODIUM
  20. PREZCOBIX [Concomitant]
     Active Substance: COBICISTAT\DARUNAVIR ETHANOLATE

REACTIONS (15)
  - Hip fracture [Recovered/Resolved]
  - Chronic kidney disease [Not Recovered/Not Resolved]
  - Depression [Unknown]
  - Bone density decreased [Not Recovered/Not Resolved]
  - Neuropathy peripheral [Unknown]
  - Soft tissue swelling [Unknown]
  - Osteonecrosis [Not Recovered/Not Resolved]
  - Fall [Unknown]
  - Pain [Unknown]
  - Multiple fractures [Unknown]
  - Bone marrow oedema [Unknown]
  - Emotional distress [Unknown]
  - Osteomalacia [Not Recovered/Not Resolved]
  - Bone contusion [Unknown]
  - Bone loss [Unknown]

NARRATIVE: CASE EVENT DATE: 201110
